FAERS Safety Report 6130492-1 (Version None)
Quarter: 2009Q1

REPORT INFORMATION
  Report Type: 
  Country: None (occurrence: None)
  Receive Date: 20090323
  Receipt Date: 20090317
  Transmission Date: 20090719
  Serious: Yes (Other)
  Sender: FDA-Public Use
  Company Number: TPA2009A00362

PATIENT
  Age: 77 Year
  Sex: Male
  Weight: 123.832 kg

DRUGS (2)
  1. ACTOS [Suspect]
     Indication: TYPE 2 DIABETES MELLITUS
     Dosage: 15 MG, 1 IN 1 D, PER ORAL, 15 MG, 1 IN 1 D, PER ORAL
     Route: 048
     Dates: start: 20061101, end: 20070201
  2. ACTOS [Suspect]
     Indication: TYPE 2 DIABETES MELLITUS
     Dosage: 15 MG, 1 IN 1 D, PER ORAL, 15 MG, 1 IN 1 D, PER ORAL
     Route: 048
     Dates: start: 20080401

REACTIONS (1)
  - BLADDER TRANSITIONAL CELL CARCINOMA [None]
